FAERS Safety Report 8127368-7 (Version None)
Quarter: 2012Q1

REPORT INFORMATION
  Report Type: 
  Country: None (occurrence: None)
  Receive Date: 20120210
  Receipt Date: 20091102
  Transmission Date: 20120608
  Serious: Yes (Hospitalization)
  Sender: FDA-Public Use
  Company Number: HR-BRISTOL-MYERS SQUIBB COMPANY-14542971

PATIENT
  Age: 62 Year
  Sex: Female

DRUGS (22)
  1. SAXAGLIPTIN [Suspect]
     Indication: TYPE 2 DIABETES MELLITUS
     Dates: start: 20081230
  2. CALCITRIOL [Concomitant]
     Indication: HYPERPARATHYROIDISM SECONDARY
     Route: 048
     Dates: start: 20080615
  3. LOVAZA [Concomitant]
     Indication: DYSLIPIDAEMIA
     Route: 048
     Dates: start: 20081217
  4. EPOETIN ALFA [Concomitant]
     Indication: ANAEMIA
     Dosage: TAKEN 6000 IU, IV FROM 17DEC2008-15JAN2009;20JAN09-09MAR09 2000 IU/W, 4000 I.U FROM 11MAR09
     Route: 042
     Dates: start: 20081217
  5. CALCIUM CARBONATE [Concomitant]
     Indication: HYPERPHOSPHATAEMIA
     Dosage: FROM 20MAR09 3GM PO
     Route: 048
     Dates: start: 20081217
  6. AMOXICILLIN AND CLAVULANATE POTASSIUM [Concomitant]
     Indication: CHOLECYSTITIS
     Route: 048
     Dates: start: 20090117, end: 20090202
  7. NADROPARINE [Concomitant]
     Indication: ANTICOAGULANT THERAPY
     Dosage: 0.3 ML PER DIALYSIS
     Route: 042
     Dates: start: 20050101
  8. ASPIRIN [Concomitant]
     Route: 048
  9. SODIUM CHLORIDE [Concomitant]
     Indication: HYPOTENSION
     Dosage: NACL 10%
     Route: 042
     Dates: start: 20060101
  10. OXAZEPAM [Concomitant]
  11. TIMOLOL MALEATE [Concomitant]
  12. SEVELAMER HCL [Concomitant]
     Indication: HYPERPHOSPHATAEMIA
     Dosage: FROM 20MAR09 2400MG PO
     Route: 048
     Dates: start: 20080715
  13. ALPHAGAN [Concomitant]
  14. NOVOMIX [Suspect]
     Indication: TYPE 2 DIABETES MELLITUS
     Dosage: NOVOMIX 30 INSULIN
     Route: 058
     Dates: start: 20050101
  15. MOXONIDINE [Concomitant]
     Indication: HYPERTENSION
     Dosage: 0.2 MG FROM 20MAR09
     Route: 048
     Dates: start: 20070101
  16. ASCORBIC ACID [Concomitant]
     Indication: RENAL FAILURE CHRONIC
     Route: 048
  17. BISACODYL [Concomitant]
     Indication: CONSTIPATION
     Route: 048
  18. PANTOPRAZOLE [Suspect]
     Indication: ABDOMINAL PAIN UPPER
     Route: 048
     Dates: start: 20090202, end: 20090325
  19. BISOPROLOL FUMARATE [Concomitant]
     Indication: HYPERTENSION
     Route: 048
     Dates: start: 20080715
  20. VITAMIN B COMPLEX CAP [Concomitant]
     Indication: RENAL FAILURE CHRONIC
     Dosage: 1 DF: 2 TBL
     Route: 048
  21. URAPIDIL [Concomitant]
     Indication: HYPERTENSION
     Dosage: 60MG FROM 20MAR09
     Route: 048
     Dates: start: 20081125
  22. AMLODIPINE [Concomitant]
     Indication: HYPERTENSION
     Dosage: 5MG FROM 20MAR09
     Route: 048
     Dates: start: 20080715

REACTIONS (1)
  - DIARRHOEA [None]
